FAERS Safety Report 12977147 (Version 1)
Quarter: 2016Q4

REPORT INFORMATION
  Report Type: Report from Study
  Country: None (occurrence: BR)
  Receive Date: 20161128
  Receipt Date: 20161128
  Transmission Date: 20170207
  Serious: Yes (Hospitalization, Other)
  Sender: FDA-Public Use
  Company Number: BR-ABBVIE-16K-020-1789037-00

PATIENT
  Age: 45 Year
  Sex: Female
  Weight: 74 kg

DRUGS (4)
  1. HUMIRA [Suspect]
     Active Substance: ADALIMUMAB
     Indication: PSORIASIS
     Dosage: LOADING DOSE, WEEK 0
     Route: 058
     Dates: start: 20140912, end: 20140912
  2. HUMIRA [Suspect]
     Active Substance: ADALIMUMAB
     Dosage: MAINTENANCE DOSE
     Route: 058
     Dates: end: 20161105
  3. JANUMET XR [Concomitant]
     Active Substance: METFORMIN HYDROCHLORIDE\SITAGLIPTIN PHOSPHATE
     Indication: BLOOD GLUCOSE ABNORMAL
     Dosage: FORM STRENGTH : SITAGLIPTIN PHOSPHATE 50 MG/ METFORMIN HYDROCHLORIDE 500 MG (JANUMET XR)
     Route: 048
  4. APLAUSE [Concomitant]
     Active Substance: BLACK COHOSH
     Indication: MENOPAUSE
     Route: 048

REACTIONS (2)
  - Thyroid disorder [Not Recovered/Not Resolved]
  - Ovarian cyst [Recovering/Resolving]

NARRATIVE: CASE EVENT DATE: 201602
